FAERS Safety Report 7560035-7 (Version None)
Quarter: 2011Q2

REPORT INFORMATION
  Report Type: 
  Country: None (occurrence: None)
  Receive Date: 20110621
  Receipt Date: 20110616
  Transmission Date: 20111010
  Serious: Yes (Death, Hospitalization)
  Sender: FDA-Public Use
  Company Number: PHHY2010JP29528

PATIENT
  Sex: Male

DRUGS (6)
  1. ASPARA-CA [Concomitant]
     Indication: HYPOCALCAEMIA
     Dosage: 1200 MG
     Route: 048
     Dates: start: 20071108
  2. MOBIC [Concomitant]
     Dosage: 10 MG
     Route: 048
     Dates: start: 20070614
  3. ZOLEDRONIC ACID [Suspect]
     Indication: METASTASES TO BONE
     Dosage: 4 MG, EVERY 4 WEEKS
     Route: 042
     Dates: start: 20070821, end: 20070913
  4. DECADRON [Concomitant]
     Dosage: 1 MG
     Route: 048
     Dates: start: 20070614
  5. MUCODYNE [Concomitant]
     Dosage: 750 MG, UNK
     Route: 048
     Dates: start: 20071108
  6. LASIX [Concomitant]
     Dosage: 20 MG
     Route: 048
     Dates: start: 20071108, end: 20071108

REACTIONS (3)
  - ALTERED STATE OF CONSCIOUSNESS [None]
  - TERMINAL STATE [None]
  - NEOPLASM MALIGNANT [None]
